FAERS Safety Report 5135984-X (Version None)
Quarter: 2006Q4

REPORT INFORMATION
  Report Type: 
  Country: None (occurrence: None)
  Receive Date: 20061020
  Receipt Date: 20061011
  Transmission Date: 20070319
  Serious: Yes (Life-Threatening)
  Sender: FDA-Public Use
  Company Number: E2090-00099-SPO-JP

PATIENT
  Age: 20 Year
  Sex: Male

DRUGS (5)
  1. ZONEGRAN [Suspect]
     Indication: EPILEPSY
     Dosage: 100 MG, ORAL
     Route: 048
     Dates: start: 20040901
  2. PHENYTOIN [Suspect]
     Indication: CONVULSION
     Dosage: 250 MG, INTRAVENOUS
     Route: 042
     Dates: start: 20060913, end: 20060913
  3. DIAZEPAM [Suspect]
     Indication: CONVULSION
     Dosage: 5 MG, INTRAVENOUS
     Route: 042
     Dates: start: 20060913, end: 20060913
  4. DORMICUM (MIDAZOLAM) [Suspect]
     Indication: DRUG USE FOR UNKNOWN INDICATION
     Dosage: 0.07 MG
     Dates: start: 20060913, end: 20060913
  5. TEGRETOL [Suspect]
     Indication: EPILEPSY
     Dosage: 500 MG, ORAL
     Route: 048
     Dates: start: 20031201

REACTIONS (5)
  - CONVULSION [None]
  - DIALYSIS [None]
  - HYPERTENSIVE ENCEPHALOPATHY [None]
  - RENAL FAILURE ACUTE [None]
  - RENAL HYPERTENSION [None]
